FAERS Safety Report 18004520 (Version 2)
Quarter: 2020Q3

REPORT INFORMATION
  Report Type: Spontaneous
  Country: JP (occurrence: JP)
  Receive Date: 20200710
  Receipt Date: 20200715
  Transmission Date: 20201103
  Serious: Yes (Hospitalization, Other)
  Sender: FDA-Public Use
  Company Number: JP-AMGEN-JPNSP2020107823

PATIENT
  Age: 59 Year
  Sex: Male
  Weight: 57.8 kg

DRUGS (13)
  1. REGPARA [Concomitant]
     Active Substance: CINACALCET HYDROCHLORIDE
     Dosage: 25 MG, EVERYDAY
     Route: 048
     Dates: end: 20181001
  2. EPOETIN ALFA [Concomitant]
     Active Substance: ERYTHROPOIETIN
     Dosage: 6000 INTERNATIONAL UNIT, QWK
     Route: 065
     Dates: start: 20200327
  3. RENAGEL [Concomitant]
     Active Substance: SEVELAMER HYDROCHLORIDE
     Dosage: 2750 MILLIGRAM, QD
     Route: 065
  4. MAXACALCITOL [Concomitant]
     Active Substance: MAXACALCITOL
     Dosage: 2.5 MICROGRAM, 3 TIMES/WK
     Route: 042
     Dates: start: 20190121
  5. REGPARA [Concomitant]
     Active Substance: CINACALCET HYDROCHLORIDE
     Dosage: 50 MG, EVERYDAY
     Route: 048
     Dates: start: 20181002, end: 20190331
  6. EPOETIN ALFA [Concomitant]
     Active Substance: ERYTHROPOIETIN
     Dosage: 4500 INTERNATIONAL UNIT, QWK
     Route: 065
     Dates: end: 20181102
  7. EPOETIN ALFA [Concomitant]
     Active Substance: ERYTHROPOIETIN
     Dosage: 6000 INTERNATIONAL UNIT, QWK
     Route: 065
     Dates: start: 20181106, end: 20181114
  8. EPOETIN ALFA [Concomitant]
     Active Substance: ERYTHROPOIETIN
     Dosage: 4500 INTERNATIONAL UNIT, QWK
     Route: 065
     Dates: start: 20181116, end: 20200325
  9. FESIN [Concomitant]
     Dosage: 120 MILLIGRAM, QWK
     Route: 042
     Dates: start: 20190130, end: 20190301
  10. ORKEDIA [Concomitant]
     Active Substance: EVOCALCET
     Dosage: 2 MILLIGRAM, Q12H
     Route: 048
     Dates: start: 20190401
  11. PARSABIV [Suspect]
     Active Substance: ETELCALCETIDE HYDROCHLORIDE
     Indication: HYPERPARATHYROIDISM SECONDARY
     Dosage: UNK
     Route: 010
  12. MAXACALCITOL [Concomitant]
     Active Substance: MAXACALCITOL
     Dosage: 5 MICROGRAM, 3 TIMES/WK
     Route: 042
     Dates: end: 20190118
  13. FOSRENOL [Concomitant]
     Active Substance: LANTHANUM CARBONATE
     Dosage: 750 MG, EVERYDAY
     Route: 048

REACTIONS (2)
  - Bile duct stone [Recovered/Resolved]
  - Bile duct stone [Recovered/Resolved]

NARRATIVE: CASE EVENT DATE: 20190610
